FAERS Safety Report 21574702 (Version 3)
Quarter: 2023Q1

REPORT INFORMATION
  Report Type: Spontaneous
  Country: CA (occurrence: CA)
  Receive Date: 20221109
  Receipt Date: 20230321
  Transmission Date: 20230417
  Serious: Yes (Hospitalization, Other)
  Sender: FDA-Public Use
  Company Number: CA-BRISTOL-MYERS SQUIBB COMPANY-2022-134977

PATIENT
  Age: 58 Year
  Sex: Female
  Weight: 64.20 kg

DRUGS (14)
  1. APIXABAN [Suspect]
     Active Substance: APIXABAN
     Indication: Portal vein thrombosis
     Route: 048
     Dates: start: 20220413, end: 20220419
  2. APIXABAN [Suspect]
     Active Substance: APIXABAN
     Route: 048
     Dates: start: 20220420, end: 20220424
  3. APIXABAN [Suspect]
     Active Substance: APIXABAN
     Route: 048
     Dates: start: 20220425
  4. CRIZOTINIB [Concomitant]
     Active Substance: CRIZOTINIB
     Indication: Uveal melanoma
     Dosage: RECEIVED CRIZOTINIB FROM 25-JUN-2022 TO 28-JUN-2022 AT A DOSE OF 200 MG BID ORALLY
     Route: 048
     Dates: start: 20220125, end: 20220809
  5. DAROVASERTIB [Concomitant]
     Active Substance: DAROVASERTIB
     Indication: Uveal melanoma
     Dosage: RECEIVED IDE196 FROM 18-JAN-2022 TO 28-JUN-2022 AT A DOSE OF 300 MG BID ORALLY
     Route: 048
     Dates: start: 20220118, end: 20220809
  6. DAROVASERTIB [Concomitant]
     Active Substance: DAROVASERTIB
     Route: 048
     Dates: start: 20220823
  7. COSOPT [Concomitant]
     Active Substance: DORZOLAMIDE HYDROCHLORIDE\TIMOLOL MALEATE
     Indication: Product used for unknown indication
     Dates: start: 201811
  8. FUROSEMIDE [Concomitant]
     Active Substance: FUROSEMIDE
     Indication: Product used for unknown indication
     Dates: start: 20220218
  9. HYDROMORPHONE [Concomitant]
     Active Substance: HYDROMORPHONE
     Indication: Product used for unknown indication
     Dates: start: 20220411
  10. SODIUM PHOSPHATE [Concomitant]
     Active Substance: SODIUM PHOSPHATE
     Indication: Product used for unknown indication
     Dates: start: 20220725
  11. POTASSIUM CHLORIDE [Concomitant]
     Active Substance: POTASSIUM CHLORIDE
     Indication: Product used for unknown indication
     Dates: start: 20220725
  12. MAGNESIUM OXIDE [Concomitant]
     Active Substance: MAGNESIUM OXIDE
     Indication: Product used for unknown indication
     Dates: start: 20220725
  13. PREDNISOLONE [Concomitant]
     Active Substance: PREDNISOLONE
     Indication: Eye inflammation
     Route: 031
     Dates: start: 201811
  14. LOPERAMIDE [Concomitant]
     Active Substance: LOPERAMIDE
     Indication: Product used for unknown indication
     Dates: start: 20220118

REACTIONS (4)
  - Iron deficiency anaemia [Recovered/Resolved]
  - Sepsis [Unknown]
  - Off label use [Unknown]
  - Hospitalisation [Unknown]

NARRATIVE: CASE EVENT DATE: 20220413
